FAERS Safety Report 6142300-3 (Version None)
Quarter: 2009Q2

REPORT INFORMATION
  Report Type: 
  Country: None (occurrence: None)
  Receive Date: 20090403
  Receipt Date: 20090331
  Transmission Date: 20091009
  Serious: Yes (Other)
  Sender: FDA-Public Use
  Company Number: PFIZER INC-2006086675

PATIENT
  Sex: Female

DRUGS (10)
  1. PROVERA [Suspect]
     Indication: HORMONE REPLACEMENT THERAPY
     Route: 048
  2. MEDROXYPROGESTERONE ACETATE [Suspect]
     Indication: HORMONE REPLACEMENT THERAPY
     Route: 048
  3. PREMPRO [Suspect]
     Indication: MENOPAUSAL SYMPTOMS
     Dosage: 0.625/2.5 MG
     Dates: end: 19990101
  4. PREMARIN [Suspect]
     Indication: MENOPAUSAL SYMPTOMS
     Dosage: UNK
     Dates: start: 19860101
  5. PROGESTIN INJ [Suspect]
     Indication: MENOPAUSAL SYMPTOMS
     Dosage: UNK
     Dates: start: 19860101
  6. AVANDIA [Concomitant]
     Indication: DIABETES MELLITUS
     Dosage: UNK
     Dates: start: 19960101
  7. ZOLOFT [Concomitant]
     Indication: NERVOUSNESS
     Dosage: UNK
     Dates: start: 19960101
  8. HUMULIN 70/30 [Concomitant]
     Indication: DIABETES MELLITUS
     Dosage: UNK
     Dates: start: 19940101
  9. NEXIUM [Concomitant]
     Indication: GASTROOESOPHAGEAL REFLUX DISEASE
     Dosage: UNK
     Dates: start: 19940101
  10. VICODIN ES [Concomitant]
     Indication: BACK PAIN
     Dosage: UNK
     Dates: start: 19940101

REACTIONS (1)
  - BREAST CANCER FEMALE [None]
